FAERS Safety Report 20172523 (Version 3)
Quarter: 2022Q4

REPORT INFORMATION
  Report Type: Spontaneous
  Country: US (occurrence: US)
  Receive Date: 20211210
  Receipt Date: 20221212
  Transmission Date: 20230112
  Serious: Yes (Other)
  Sender: FDA-Public Use
  Company Number: US-009507513-2107USA004314

PATIENT
  Sex: Female
  Weight: 71.655 kg

DRUGS (4)
  1. ZOSTAVAX [Suspect]
     Active Substance: VARICELLA-ZOSTER VIRUS STRAIN OKA/MERCK LIVE ANTIGEN
     Indication: Prophylaxis
     Dosage: .65 MILLILITER
     Route: 058
     Dates: start: 20140116
  2. STERILE DILUENT (WATER) [Suspect]
     Active Substance: WATER
     Dosage: UNK
     Dates: start: 20140116
  3. XANAX [Concomitant]
     Active Substance: ALPRAZOLAM
     Indication: Anxiety
     Dosage: 2 MG, 2 X DAY
     Dates: start: 1994
  4. METOPROLOL [Concomitant]
     Active Substance: METOPROLOL
     Indication: Hypertension
     Dosage: 50 MG, 1 X DAY
     Dates: start: 1994, end: 2022

REACTIONS (19)
  - Meniere^s disease [Unknown]
  - Deafness neurosensory [Unknown]
  - Drug dependence [Unknown]
  - Major depression [Recovered/Resolved]
  - Vaccination site nodule [Unknown]
  - Vaccination site movement impairment [Unknown]
  - Vaccination site hypoaesthesia [Unknown]
  - Anxiety [Unknown]
  - Insomnia [Unknown]
  - Hyperlipidaemia [Unknown]
  - Eustachian tube dysfunction [Unknown]
  - Neck pain [Unknown]
  - Upper respiratory tract infection [Unknown]
  - Skin exfoliation [Unknown]
  - Irritability [Unknown]
  - Herpes zoster [Unknown]
  - Vaccination site swelling [Unknown]
  - Vaccination site discomfort [Unknown]
  - Vaccination site warmth [Unknown]

NARRATIVE: CASE EVENT DATE: 20140116
